FAERS Safety Report 5657375-5 (Version None)
Quarter: 2008Q1

REPORT INFORMATION
  Report Type: 
  Country: None (occurrence: None)
  Receive Date: 20080310
  Receipt Date: 20080229
  Transmission Date: 20080703
  Serious: Yes (Other)
  Sender: FDA-Public Use
  Company Number: PHBS2008DE02996

PATIENT
  Age: 49 Year
  Sex: Female

DRUGS (6)
  1. CYCLOSPORINE [Suspect]
     Indication: LIVER TRANSPLANT
     Dosage: UNK, UNK
     Route: 065
     Dates: start: 19990101
  2. TACROLIMUS [Suspect]
     Indication: LIVER TRANSPLANT
     Dosage: 2 MG, BID
     Route: 065
  3. TACROLIMUS [Suspect]
     Dosage: 3 MG, BID
     Route: 065
  4. MYCOPHENOLATE MOFETIL [Suspect]
     Indication: LIVER TRANSPLANT
     Dosage: 0.5 G, BID
     Route: 065
  5. MYCOPHENOLATE MOFETIL [Suspect]
     Dosage: 1.5 G, BID
     Route: 065
  6. PREDNISOLONE [Suspect]
     Indication: LIVER TRANSPLANT
     Dosage: 20 MG, QD
     Route: 065

REACTIONS (9)
  - FAT TISSUE INCREASED [None]
  - FLUID RETENTION [None]
  - INTRA-ABDOMINAL HAEMORRHAGE [None]
  - LAPAROTOMY [None]
  - LIPOMATOSIS [None]
  - LIVER DISORDER [None]
  - LIVER TRANSPLANT REJECTION [None]
  - TRANSAMINASES INCREASED [None]
  - WEIGHT INCREASED [None]
